FAERS Safety Report 15359728 (Version 1)
Quarter: 2018Q3

REPORT INFORMATION
  Report Type: Spontaneous
  Country: US (occurrence: US)
  Receive Date: 20180907
  Receipt Date: 20180907
  Transmission Date: 20181010
  Serious: No
  Sender: FDA-Public Use
  Company Number: US-ASTRAZENECA-2018SF06024

PATIENT
  Sex: Female

DRUGS (1)
  1. BYDUREON [Suspect]
     Active Substance: EXENATIDE
     Dosage: 2.0MG UNKNOWN
     Route: 058

REACTIONS (4)
  - Intentional product misuse [Unknown]
  - Injection site nodule [Not Recovered/Not Resolved]
  - Circumstance or information capable of leading to medication error [Unknown]
  - Device leakage [Unknown]

NARRATIVE: CASE EVENT DATE: 20180819
